FAERS Safety Report 25070382 (Version 1)
Quarter: 2025Q1

REPORT INFORMATION
  Report Type: Report from Study
  Country: US (occurrence: US)
  Receive Date: 20250312
  Receipt Date: 20250312
  Transmission Date: 20250408
  Serious: Yes (Hospitalization, Other)
  Sender: GILEAD
  Company Number: US-GILEAD-2025-0706913

PATIENT
  Sex: Female

DRUGS (10)
  1. AZTREONAM LYSINE [Suspect]
     Active Substance: AZTREONAM LYSINE
     Indication: Cystic fibrosis lung
     Dosage: INHALE 75 MG VIA ALTERA NEBULIZER THREE TIMES DAILY (AT LEAST 4 HOURS APART) 28 DAYS ON, 28 DAYS OFF
     Route: 055
  2. CREON [Concomitant]
     Active Substance: PANCRELIPASE AMYLASE\PANCRELIPASE LIPASE\PANCRELIPASE PROTEASE
  3. ALBUTEROL SULFATE [Concomitant]
     Active Substance: ALBUTEROL SULFATE
  4. ADVAIR HFA [Concomitant]
     Active Substance: FLUTICASONE PROPIONATE\SALMETEROL XINAFOATE
  5. PROBIOTIC 10 BILLION DAILY MAINTENANCE [Concomitant]
  6. COLISTIN [Concomitant]
     Active Substance: COLISTIN
  7. PULMOZYME [Concomitant]
     Active Substance: DORNASE ALFA
  8. KALYDECO [Concomitant]
     Active Substance: IVACAFTOR
  9. MINERALS\VITAMINS [Concomitant]
     Active Substance: MINERALS\VITAMINS
  10. AZITHROMYCIN [Concomitant]
     Active Substance: AZITHROMYCIN

REACTIONS (2)
  - Viral infection [Unknown]
  - Pneumonia [Unknown]
